FAERS Safety Report 6406204-0 (Version None)
Quarter: 2009Q4

REPORT INFORMATION
  Report Type: 
  Country: None (occurrence: None)
  Receive Date: 20091014
  Receipt Date: 20091002
  Transmission Date: 20100525
  Serious: Yes (Life-Threatening)
  Sender: FDA-Public Use
  Company Number: APP200900641

PATIENT
  Age: 53 Year
  Sex: Male
  Weight: 88 kg

DRUGS (3)
  1. NAROPIN [Suspect]
     Indication: NERVE BLOCK
     Dosage: 10 ML
     Dates: start: 20090930, end: 20090930
  2. CARBOCAIN [Suspect]
     Indication: NERVE BLOCK
     Dosage: 10 ML
     Dates: start: 20090930, end: 20090930
  3. DEXAMETHASONE 4MG TAB [Suspect]
     Indication: NERVE BLOCK
     Dosage: 4 MG
     Dates: start: 20090930, end: 20090930

REACTIONS (2)
  - GRAND MAL CONVULSION [None]
  - RESUSCITATION [None]
